FAERS Safety Report 12964732 (Version 1)
Quarter: 2016Q4

REPORT INFORMATION
  Report Type: Spontaneous
  Country: TR (occurrence: TR)
  Receive Date: 20161122
  Receipt Date: 20161122
  Transmission Date: 20170207
  Serious: Yes (Death, Hospitalization)
  Sender: FDA-Public Use
  Company Number: TR-INGENUS PHARMACEUTICALS NJ, LLC-ING201611-000109

PATIENT
  Age: 16 Year
  Sex: Female

DRUGS (1)
  1. PROBENECID AND COLCHICINE [Suspect]
     Active Substance: COLCHICINE\PROBENECID

REACTIONS (8)
  - Disseminated intravascular coagulation [Fatal]
  - Diarrhoea [Unknown]
  - Completed suicide [Fatal]
  - Multiple organ dysfunction syndrome [Fatal]
  - Nausea [Unknown]
  - Toxicity to various agents [Fatal]
  - Shock [Fatal]
  - Vomiting [Unknown]
